FAERS Safety Report 6394913-1 (Version None)
Quarter: 2009Q4

REPORT INFORMATION
  Report Type: 
  Country: None (occurrence: None)
  Receive Date: 20091009
  Receipt Date: 20090930
  Transmission Date: 20100525
  Serious: Yes (Hospitalization)
  Sender: FDA-Public Use
  Company Number: US-JNJFOC-20091000185

PATIENT
  Age: 55 Year
  Sex: Male
  Weight: 99.79 kg

DRUGS (5)
  1. REMICADE [Suspect]
     Indication: PSORIASIS
     Route: 042
  2. ASPIRIN [Concomitant]
  3. CRESTOR [Concomitant]
  4. METFORMIN HYDROCHLORIDE [Concomitant]
  5. MICARDIS [Concomitant]

REACTIONS (1)
  - DIVERTICULITIS [None]
